FAERS Safety Report 24412756 (Version 1)
Quarter: 2024Q4

REPORT INFORMATION
  Report Type: Spontaneous
  Country: JP (occurrence: JP)
  Receive Date: 20241008
  Receipt Date: 20241008
  Transmission Date: 20250114
  Serious: Yes (Other)
  Sender: ELI LILLY AND CO
  Company Number: JP-Merck Healthcare KGaA-2024051616

PATIENT
  Age: 55 Year
  Sex: Male

DRUGS (8)
  1. ERBITUX [Suspect]
     Active Substance: CETUXIMAB
     Indication: Colon cancer metastatic
     Dosage: 250 MG/M2
     Route: 041
     Dates: start: 202202
  2. BINIMETINIB [Suspect]
     Active Substance: BINIMETINIB
     Indication: Colon cancer metastatic
     Dosage: 50 MG 6C 1
     Route: 048
     Dates: start: 202202
  3. ENCORAFENIB [Suspect]
     Active Substance: ENCORAFENIB
     Indication: Colon cancer metastatic
     Dosage: 20 MG 1C 1
     Route: 048
     Dates: start: 202202
  4. DEXAMETHASONE [Suspect]
     Active Substance: DEXAMETHASONE
     Indication: Premedication
     Dosage: 6.6 MG, UNK
     Route: 065
  5. CHLORPHENIRAMINE [Suspect]
     Active Substance: CHLORPHENIRAMINE
     Indication: Premedication
     Dosage: 5 MG, UNK
     Route: 065
  6. LOXOPROFEN [Suspect]
     Active Substance: LOXOPROFEN
     Indication: Product used for unknown indication
     Dosage: 60 MG 3T 3 (WITH SELF-REGULATION)
     Route: 048
  7. ACETAMINOPHEN [Suspect]
     Active Substance: ACETAMINOPHEN
     Indication: Product used for unknown indication
     Dosage: 500 MG 4T 4
     Route: 048
  8. ESOMEPRAZOLE [Suspect]
     Active Substance: ESOMEPRAZOLE
     Indication: Product used for unknown indication
     Dosage: 20 MG 1C
     Route: 048

REACTIONS (5)
  - Liver injury [Recovering/Resolving]
  - Detachment of macular retinal pigment epithelium [Unknown]
  - Macular oedema [Unknown]
  - Dermatitis acneiform [Not Recovered/Not Resolved]
  - Stomatitis [Unknown]
